FAERS Safety Report 24041684 (Version 1)
Quarter: 2024Q3

REPORT INFORMATION
  Report Type: Spontaneous
  Country: US (occurrence: US)
  Receive Date: 20240702
  Receipt Date: 20240702
  Transmission Date: 20241016
  Serious: No
  Sender: SAREPTA THERAPEUTICS
  Company Number: US-SAREPTA THERAPEUTICS INC.-SRP2024-004240

PATIENT
  Age: 15 Year
  Sex: Male
  Weight: 36.7 kg

DRUGS (2)
  1. EXONDYS 51 [Suspect]
     Active Substance: ETEPLIRSEN
     Indication: Product used for unknown indication
     Dosage: 1100 MILLIGRAM, WEEKLY
     Route: 042
     Dates: start: 2018, end: 20240102
  2. EXONDYS 51 [Suspect]
     Active Substance: ETEPLIRSEN
     Dosage: 1100 MILLIGRAM, WEEKLY
     Route: 042
     Dates: start: 20240115

REACTIONS (1)
  - Influenza like illness [Recovered/Resolved]

NARRATIVE: CASE EVENT DATE: 20240106
